FAERS Safety Report 9331012 (Version 4)
Quarter: 2014Q1

REPORT INFORMATION
  Report Type: Spontaneous
  Country: IT (occurrence: IT)
  Receive Date: 20130605
  Receipt Date: 20140124
  Transmission Date: 20141002
  Serious: Yes (Other)
  Sender: FDA-Public Use
  Company Number: IT-PFIZER INC-2013169586

PATIENT
  Age: 19 Year
  Sex: Female

DRUGS (4)
  1. XANAX [Suspect]
     Dosage: 0.75 MG DROPS, SINGLE
     Route: 048
     Dates: start: 20130423, end: 20130423
  2. PAROXETINE [Suspect]
     Dosage: 360 MG, SINGLE (20 MG 18 TABLETS)
     Route: 048
     Dates: start: 20130423, end: 20130423
  3. SURMONTIL [Suspect]
     Dosage: 40 MG, SINGLE (BOTTLE 20 ML)
     Route: 048
     Dates: start: 20130423, end: 20130423
  4. TRILAFON [Suspect]
     Dosage: 400 MG, SINGLE (20 TABLETS 20 MG)
     Route: 048
     Dates: start: 20130423, end: 20130423

REACTIONS (3)
  - Drug abuse [Recovering/Resolving]
  - Confusional state [Recovering/Resolving]
  - Toxicity to various agents [Recovering/Resolving]
